FAERS Safety Report 10375520 (Version 3)
Quarter: 2014Q4

REPORT INFORMATION
  Report Type: Spontaneous
  Country: CH (occurrence: None)
  Receive Date: 20140806
  Receipt Date: 20141218
  Transmission Date: 20150528
  Serious: Yes (Life-Threatening)
  Sender: FDA-Public Use
  Company Number: 20140473

PATIENT
  Age: 45 Year
  Sex: Female
  Weight: 55 kg

DRUGS (2)
  1. NEXIUM [Concomitant]
     Active Substance: ESOMEPRAZOLE MAGNESIUM
  2. FERINJECT [Suspect]
     Active Substance: FERRIC CARBOXYMALTOSE
     Indication: ANAEMIA
     Dosage: 500 MG TWICE WITH 1 WK INTERVAL TOTAL INTRAVENOUS
     Route: 042
     Dates: start: 20140403, end: 20140414

REACTIONS (4)
  - Hypophosphataemia [None]
  - Blood phosphorus decreased [None]
  - Renal tubular disorder [None]
  - Fatigue [None]

NARRATIVE: CASE EVENT DATE: 20140423
